FAERS Safety Report 5563704-3 (Version None)
Quarter: 2007Q4

REPORT INFORMATION
  Report Type: 
  Country: None (occurrence: None)
  Receive Date: 20071214
  Receipt Date: 20071214
  Transmission Date: 20080405
  Serious: Yes (Disabling, Other)
  Sender: FDA-Public Use
  Company Number: None

PATIENT
  Age: 71 Year
  Sex: Male
  Weight: 87.9978 kg

DRUGS (10)
  1. JANUVIA [Suspect]
     Indication: DIABETES MELLITUS
     Dosage: 100MG QD ORAL
     Route: 048
     Dates: start: 20070515
  2. ZETIA [Concomitant]
  3. PREVACID [Concomitant]
  4. ACTOS [Concomitant]
  5. GLYBURIDE [Concomitant]
  6. GLUCOPHAGE [Concomitant]
  7. XALATAN [Concomitant]
  8. FUROSEMIDE [Concomitant]
  9. BENICOR [Concomitant]
  10. COSOPT [Concomitant]

REACTIONS (2)
  - DEAFNESS NEUROSENSORY [None]
  - TINNITUS [None]
